FAERS Safety Report 18792886 (Version 1)
Quarter: 2021Q1

REPORT INFORMATION
  Report Type: Report from Study
  Country: US (occurrence: US)
  Receive Date: 20210127
  Receipt Date: 20210127
  Transmission Date: 20210419
  Serious: Yes (Other)
  Sender: FDA-Public Use
  Company Number: US-JNJFOC-20210127715

PATIENT
  Age: 46 Year
  Sex: Female

DRUGS (11)
  1. INSULIN [Concomitant]
     Active Substance: INSULIN NOS
  2. STELARA [Suspect]
     Active Substance: USTEKINUMAB
  3. ANUCORT?HC [Concomitant]
     Active Substance: HYDROCORTISONE ACETATE
  4. BUDESONIDE. [Concomitant]
     Active Substance: BUDESONIDE
  5. MESALAMINE. [Concomitant]
     Active Substance: MESALAMINE
  6. ETODOLAC ER [Concomitant]
     Active Substance: ETODOLAC
  7. AMETHYST [Concomitant]
     Active Substance: ETHINYL ESTRADIOL\LEVONORGESTREL
  8. CYCLOBENZAPRINE. [Concomitant]
     Active Substance: CYCLOBENZAPRINE
  9. CYANOCOBALAMIN. [Concomitant]
     Active Substance: CYANOCOBALAMIN
  10. STELARA [Suspect]
     Active Substance: USTEKINUMAB
     Indication: CROHN^S DISEASE
     Route: 058
     Dates: start: 20200401
  11. BUPROPION. [Concomitant]
     Active Substance: BUPROPION

REACTIONS (2)
  - Arthritis [Recovered/Resolved]
  - Hyperthyroidism [Recovered/Resolved]
